FAERS Safety Report 5773050-0 (Version None)
Quarter: 2008Q2

REPORT INFORMATION
  Report Type: 
  Country: None (occurrence: None)
  Receive Date: 20080613
  Receipt Date: 20080606
  Transmission Date: 20081010
  Serious: Yes (Other)
  Sender: FDA-Public Use
  Company Number: US-PFIZER INC-2006033863

PATIENT
  Sex: Male
  Weight: 90.7 kg

DRUGS (4)
  1. LIPITOR [Suspect]
     Indication: BLOOD CHOLESTEROL INCREASED
     Dosage: DAILY DOSE:20MG-FREQ:DAILY
  2. VOLTAREN [Concomitant]
  3. COREG [Concomitant]
  4. MAVIK [Concomitant]

REACTIONS (6)
  - ASTHENIA [None]
  - BLOOD CHOLESTEROL INCREASED [None]
  - FIBROMYALGIA [None]
  - GAIT DISTURBANCE [None]
  - PAIN [None]
  - UNEVALUABLE EVENT [None]
